FAERS Safety Report 17674204 (Version 1)
Quarter: 2020Q2

REPORT INFORMATION
  Report Type: Report from Study
  Country: None (occurrence: US)
  Receive Date: 20200416
  Receipt Date: 20200416
  Transmission Date: 20200714
  Serious: Yes (Other)
  Sender: FDA-Public Use
  Company Number: US-ABBVIE-20K-163-3225561-00

PATIENT
  Sex: Female

DRUGS (1)
  1. HUMIRA [Suspect]
     Active Substance: ADALIMUMAB
     Indication: PSORIATIC ARTHROPATHY
     Dosage: 40
     Route: 058
     Dates: start: 2015

REACTIONS (7)
  - Meniscus injury [Recovering/Resolving]
  - Postoperative wound infection [Recovered/Resolved]
  - Procedural pain [Unknown]
  - Spondylolisthesis [Recovering/Resolving]
  - Tendon rupture [Recovering/Resolving]
  - Spinal operation [Unknown]
  - Psoriasis [Not Recovered/Not Resolved]

NARRATIVE: CASE EVENT DATE: 2016
